FAERS Safety Report 24192813 (Version 1)
Quarter: 2024Q3

REPORT INFORMATION
  Report Type: Spontaneous
  Country: US (occurrence: US)
  Receive Date: 20240809
  Receipt Date: 20240809
  Transmission Date: 20241016
  Serious: Yes (Other)
  Sender: ABBVIE
  Company Number: US-ABBVIE-5865614

PATIENT
  Age: 43 Year
  Sex: Female
  Weight: 81 kg

DRUGS (19)
  1. LUPRON [Suspect]
     Active Substance: LEUPROLIDE ACETATE
     Indication: Breast cancer metastatic
     Route: 065
  2. GOSERELIN [Concomitant]
     Active Substance: GOSERELIN
     Indication: Product used for unknown indication
  3. EXEMESTANE [Concomitant]
     Active Substance: EXEMESTANE
     Indication: Product used for unknown indication
  4. TAMOXIFEN [Concomitant]
     Active Substance: TAMOXIFEN
     Indication: Product used for unknown indication
  5. IBRANCE [Suspect]
     Active Substance: PALBOCICLIB
     Indication: Neutropenia
     Route: 048
     Dates: start: 201802
  6. IBRANCE [Suspect]
     Active Substance: PALBOCICLIB
     Indication: Neutropenia
     Dosage: ON DAYS 1-21 OF 28-DAY CYCLE      LAST ADMIN DATE? 2024
     Route: 048
     Dates: start: 20240329
  7. IBRANCE [Suspect]
     Active Substance: PALBOCICLIB
     Indication: Neutropenia
     Route: 048
     Dates: start: 202007
  8. IBRANCE [Suspect]
     Active Substance: PALBOCICLIB
     Indication: Neutropenia
     Dosage: (DISP 21, 28 D SUPPLY)     DISCONTINUED 2023
     Route: 048
     Dates: start: 20240712, end: 20240717
  9. IBRANCE [Suspect]
     Active Substance: PALBOCICLIB
     Indication: Neutropenia
     Dosage: 120/173 DAYS  (DISP 21, 28 D SUPPLY)  LAST ADMIN DATE 2023
     Route: 048
     Dates: start: 20240619
  10. IBRANCE [Suspect]
     Active Substance: PALBOCICLIB
     Indication: Neutropenia
     Dosage: HIGH: 80 % OR ABOVE  (DISP 21, 28 D SUPPLY)     LAST ADMIN DATE? 2024
     Route: 048
     Dates: start: 20240526
  11. IBRANCE [Suspect]
     Active Substance: PALBOCICLIB
     Indication: Neutropenia
     Dosage: MODERATE: 60%-79%  (DISP 21, 28 D SUPPLY)      LAST ADMIN DATE?2024
     Route: 048
     Dates: start: 20240410
  12. IBRANCE [Suspect]
     Active Substance: PALBOCICLIB
     Indication: Neutropenia
     Dosage: LOW BELOW 60 %  (DISP 21, 28 D SUPPLY)    LAST ADMIN DATE? 2024
     Route: 048
     Dates: start: 20240315
  13. IBRANCE [Suspect]
     Active Substance: PALBOCICLIB
     Indication: Neutropenia
     Dosage: 21 TABLET 4 REFILLS ON DAYS 1-21 OF 28 DAY CYCLE
     Route: 048
     Dates: start: 20240718, end: 20240718
  14. IBRANCE [Suspect]
     Active Substance: PALBOCICLIB
     Indication: Neutropenia
     Route: 048
     Dates: start: 20240620
  15. XGEVA [Suspect]
     Active Substance: DENOSUMAB
     Indication: Product used for unknown indication
     Route: 065
     Dates: end: 201902
  16. CELEXA [Suspect]
     Active Substance: CITALOPRAM HYDROBROMIDE
     Indication: Product used for unknown indication
     Route: 065
  17. GABAPENTIN [Concomitant]
     Active Substance: GABAPENTIN
     Indication: Product used for unknown indication
     Dosage: STRENGTH 100 MG AT BEDTIME (PATIENT TAKING DIFFERENTLY: TAKE 200 MG BY MOUTH AS NEEDED)
     Route: 048
     Dates: start: 20231112, end: 20240608
  18. EFFEXOR [Suspect]
     Active Substance: VENLAFAXINE HYDROCHLORIDE
     Indication: Product used for unknown indication
     Route: 065
  19. ANASTROZOLE [Concomitant]
     Active Substance: ANASTROZOLE
     Indication: Product used for unknown indication
     Dates: start: 201802

REACTIONS (9)
  - Bone cancer metastatic [Unknown]
  - Piriformis syndrome [Unknown]
  - Pain in extremity [Unknown]
  - Arthralgia [Not Recovered/Not Resolved]
  - Neutropenia [Unknown]
  - Menopausal symptoms [Unknown]
  - Drug intolerance [Unknown]
  - Nasal discomfort [Unknown]
  - Sinus disorder [Unknown]

NARRATIVE: CASE EVENT DATE: 20190201
